FAERS Safety Report 8388520-9 (Version None)
Quarter: 2012Q2

REPORT INFORMATION
  Report Type: 
  Country: None (occurrence: None)
  Receive Date: 20120525
  Receipt Date: 20120510
  Transmission Date: 20120825
  Serious: Yes (Hospitalization, Other)
  Sender: FDA-Public Use
  Company Number: CHPA2012US010905

PATIENT
  Age: 73 Year
  Sex: Female

DRUGS (1)
  1. FERROUS SULFATE TAB [Suspect]
     Indication: BLOOD IRON DECREASED
     Dosage: 2 DF, QD
     Route: 048

REACTIONS (3)
  - HAEMOGLOBIN DECREASED [None]
  - CEREBROVASCULAR ACCIDENT [None]
  - OVERDOSE [None]
